FAERS Safety Report 9983512 (Version 1)
Quarter: 2014Q1

REPORT INFORMATION
  Report Type: Spontaneous
  Country: GB (occurrence: GB)
  Receive Date: 20140307
  Receipt Date: 20140307
  Transmission Date: 20141002
  Serious: Yes (Life-Threatening, Other)
  Sender: FDA-Public Use
  Company Number: GB-ACTAVIS-2014-03649

PATIENT
  Age: 27 Year
  Sex: Female
  Weight: 50 kg

DRUGS (5)
  1. SALBUTAMOL (UNKNOWN) [Suspect]
     Indication: WHEEZING
     Dosage: 5 MG, TOTAL, SINGLE DOSE; NEBULISER
     Route: 065
  2. VITAMIN B COMPOUND                 /00171501/ [Concomitant]
     Indication: ALCOHOLISM
     Dosage: 1 DF, DAILY
     Route: 048
  3. MIRTAZAPINE [Concomitant]
     Indication: DEPRESSION
     Dosage: 30 MG, UNKNOWN
     Route: 048
  4. QUETIAPINE [Concomitant]
     Indication: DEPRESSION
     Dosage: 25 MG, UNKNOWN
     Route: 048
  5. THIAMINE [Concomitant]
     Indication: ALCOHOLISM
     Dosage: 100 MG, UNKNOWN
     Route: 048

REACTIONS (1)
  - Anaphylactic reaction [Recovered/Resolved]
